FAERS Safety Report 18543718 (Version 1)
Quarter: 2020Q4

REPORT INFORMATION
  Report Type: Spontaneous
  Country: JP (occurrence: JP)
  Receive Date: 20201124
  Receipt Date: 20201124
  Transmission Date: 20210114
  Serious: Yes (Other)
  Sender: FDA-Public Use
  Company Number: JP-SA-2020SA331441

PATIENT

DRUGS (1)
  1. KEVZARA [Suspect]
     Active Substance: SARILUMAB
     Indication: PRODUCT USED FOR UNKNOWN INDICATION
     Route: 058

REACTIONS (8)
  - Pruritus [Unknown]
  - Influenza [Unknown]
  - Bronchiolitis [Unknown]
  - Cystitis [Unknown]
  - Eosinophil count increased [Unknown]
  - Rhinitis [Unknown]
  - Pneumonia bacterial [Unknown]
  - Pharyngitis [Unknown]
